FAERS Safety Report 7043158 (Version 3)
Quarter: 2014Q4

REPORT INFORMATION
  Report Type: Spontaneous
  Country: FR (occurrence: FR)
  Receive Date: 20090707
  Receipt Date: 20141223
  Transmission Date: 20150529
  Serious: Yes (Hospitalization)
  Sender: FDA-Public Use
  Company Number: FR-ALLERGAN-0909355US

PATIENT
  Age: 80 Year
  Sex: Male

DRUGS (2)
  1. TROSPIUM CHLORIDE. [Suspect]
     Active Substance: TROSPIUM CHLORIDE
     Indication: HYPERTONIC BLADDER
     Dosage: 20 MG, BID
     Route: 048
     Dates: end: 20090501
  2. TROSPIUM CHLORIDE. [Suspect]
     Active Substance: TROSPIUM CHLORIDE
     Dosage: 20 MG, QD
     Route: 048
     Dates: start: 20090514

REACTIONS (4)
  - Confusional state [Recovering/Resolving]
  - Lethargy [Recovering/Resolving]
  - Depressed level of consciousness [Recovering/Resolving]
  - Gait disturbance [Recovering/Resolving]

NARRATIVE: CASE EVENT DATE: 20090501
